FAERS Safety Report 7685707-5 (Version None)
Quarter: 2011Q3

REPORT INFORMATION
  Report Type: 
  Country: None (occurrence: None)
  Receive Date: 20110816
  Receipt Date: 20110608
  Transmission Date: 20111222
  Serious: Yes (Hospitalization)
  Sender: FDA-Public Use
  Company Number: AU-ROCHE-782241

PATIENT
  Age: 58 Year
  Sex: Male

DRUGS (11)
  1. COLOXYL [Concomitant]
     Indication: PROPHYLAXIS
     Dosage: DRUG REPORTED AS COLOXYL WITH SENNA, DOSE 1 AT NIGHT
  2. MYCOPHENOLATE MOFETIL [Suspect]
     Indication: RENAL TRANSPLANT
     Route: 065
     Dates: start: 20091213
  3. PROMETHAZINE HYDROCHLORIDE [Concomitant]
     Indication: PROPHYLAXIS
     Dosage: DOSE REPORTED AS 10-25 MG WHEN REQUIRED
  4. PANTOPRAZOLE [Concomitant]
     Indication: PROPHYLAXIS
  5. LACTULOSE [Concomitant]
     Indication: PROPHYLAXIS
  6. TACROLIMUS [Suspect]
     Indication: RENAL TRANSPLANT
     Dosage: DOSE, FREQUENCY REPORTED AS : 2 MG IN THE MORNING AND 2 MG AT NIGHT
     Route: 048
     Dates: start: 20091213
  7. SERETIDE [Concomitant]
     Dosage: FREQUENCY REPORTED AS 2 PUFFS WHEN REQUIRED
  8. GABAPENTIN [Concomitant]
  9. PREDNISOLONE [Suspect]
     Indication: RENAL TRANSPLANT
     Dosage: DOSE REPORTED AS 2.5 MG OR 5 MG ON ALTERNATE DAYS
     Route: 065
  10. LIPITOR [Concomitant]
     Dates: start: 20100202
  11. MYCOPHENOLATE MOFETIL [Suspect]
     Route: 065
     Dates: start: 20110124

REACTIONS (2)
  - METASTATIC SQUAMOUS CELL CARCINOMA [None]
  - TONGUE NEOPLASM MALIGNANT STAGE UNSPECIFIED [None]
